FAERS Safety Report 8594165 (Version 6)
Quarter: 2013Q1

REPORT INFORMATION
  Report Type: Report from Study
  Country: JP (occurrence: JP)
  Receive Date: 20120604
  Receipt Date: 20130308
  Transmission Date: 20140127
  Serious: Yes (Hospitalization, Other)
  Sender: FDA-Public Use
  Company Number: JP-ROCHE-1073648

PATIENT
  Age: 62 Year
  Sex: Male
  Weight: 52.3 kg

DRUGS (28)
  1. RITUXIMAB [Suspect]
     Indication: B-CELL LYMPHOMA
     Dosage: LAST DOSE PRIOR SAE 16/MAY/2012, VOLUME OF LAST DOSE 551.25ML, DOSE CONCENTRATION: 1 MG/ML
     Route: 042
     Dates: start: 20120516
  2. CYCLOPHOSPHAMIDE [Suspect]
     Indication: B-CELL LYMPHOMA
     Dosage: DATE OF MOST RECENT DOSE PRIOR TO SAE WAS ON 16 MAY 2012 AND LAST DOSE WAS 1155 MG
     Route: 042
     Dates: start: 20120516
  3. DOXORUBICIN [Suspect]
     Indication: B-CELL LYMPHOMA
     Dosage: LAST DOSE PRIOR SAE 16/MAY/2012,DOSE OF LAST DOXORUBICIN 77MG
     Route: 042
     Dates: start: 20120516
  4. VINCRISTINE [Suspect]
     Indication: B-CELL LYMPHOMA
     Dosage: LAST DOSE PRIOR SAE 16/MAY/2012, DOSE OF LAST VINCRISTINE 2MG
     Route: 042
     Dates: start: 20120516
  5. PREDNISONE [Suspect]
     Indication: B-CELL LYMPHOMA
     Dosage: LAST DOSE PRIOR SAE 20/MAY/2012, DOSE OF LAST PREDNISONE: 100MG
     Route: 065
     Dates: start: 20120516
  6. LANSOPRAZOLE [Concomitant]
     Indication: GASTRIC ULCER
     Route: 065
     Dates: start: 201203
  7. L-GLUTAMINE [Concomitant]
     Indication: GASTRIC ULCER
     Route: 065
     Dates: end: 20120530
  8. L-GLUTAMINE [Concomitant]
     Route: 065
     Dates: start: 20120601, end: 20120821
  9. SUCRALFATE [Concomitant]
     Indication: ABDOMINAL PAIN UPPER
     Route: 065
     Dates: end: 20120530
  10. SUCRALFATE [Concomitant]
     Indication: GASTRITIS
     Route: 065
     Dates: start: 20120601, end: 20120821
  11. SUCRALFATE [Concomitant]
     Route: 065
     Dates: start: 20120424, end: 20120821
  12. ETIZOLAM [Concomitant]
     Indication: ANXIETY
     Route: 065
     Dates: end: 20120530
  13. ETIZOLAM [Concomitant]
     Indication: INSOMNIA
     Route: 065
     Dates: start: 20120601
  14. ALLOPURINOL [Concomitant]
     Indication: HYPERURICAEMIA
     Route: 065
     Dates: start: 20120302, end: 20120530
  15. ALLOPURINOL [Concomitant]
     Route: 065
     Dates: start: 20120601, end: 20120914
  16. AMLODIPINE BESILATE [Concomitant]
     Indication: HYPERTENSION
     Route: 065
     Dates: start: 20120509, end: 20120530
  17. AMLODIPINE BESILATE [Concomitant]
     Route: 065
     Dates: start: 20120602
  18. SULFAMETHOXAZOLE/TRIMETHOPRIM [Concomitant]
     Route: 065
     Dates: start: 20120515, end: 20120530
  19. SULFAMETHOXAZOLE/TRIMETHOPRIM [Concomitant]
     Route: 065
     Dates: start: 20120602
  20. METOCLOPRAMIDE [Concomitant]
     Indication: HICCUPS
     Route: 065
     Dates: start: 20120517, end: 20120629
  21. CEFEPIME DIHYDROCHLORIDE [Concomitant]
     Indication: FEBRILE NEUTROPENIA
     Route: 065
     Dates: start: 20120525, end: 20120528
  22. MEROPENEM [Concomitant]
     Indication: FEBRILE NEUTROPENIA
     Route: 065
     Dates: start: 20120528, end: 20120604
  23. MAGNESIUM OXIDE [Concomitant]
     Indication: CONSTIPATION
     Route: 065
     Dates: start: 20120525, end: 20120529
  24. MAGNESIUM OXIDE [Concomitant]
     Route: 065
     Dates: start: 20120602, end: 20120718
  25. SENNOSIDE A+B [Concomitant]
     Route: 065
     Dates: start: 20120525
  26. NEW LECICARBON [Concomitant]
     Indication: CONSTIPATION
     Route: 065
     Dates: start: 20120527, end: 20120527
  27. MARZULENE COMBINATION [Concomitant]
     Indication: GASTRIC ULCER
     Route: 065
     Dates: start: 20120425, end: 20120530
  28. MARZULENE COMBINATION [Concomitant]
     Route: 065
     Dates: start: 20120601, end: 20120821

REACTIONS (1)
  - Gastric haemorrhage [Recovered/Resolved]
